FAERS Safety Report 8610061-1 (Version None)
Quarter: 2012Q3

REPORT INFORMATION
  Report Type: 
  Country: None (occurrence: None)
  Receive Date: 20120822
  Receipt Date: 20120807
  Transmission Date: 20120928
  Serious: Yes (Hospitalization)
  Sender: FDA-Public Use
  Company Number: US-AMGEN-USASP2012041059

PATIENT
  Age: 71 Year
  Sex: Female

DRUGS (1)
  1. ENBREL [Suspect]
     Indication: RHEUMATOID ARTHRITIS
     Dosage: 25 MG, 2 TIMES/WK
     Dates: start: 20001001

REACTIONS (11)
  - WEIGHT DECREASED [None]
  - EYE IRRITATION [None]
  - INCORRECT STORAGE OF DRUG [None]
  - DRUG INEFFECTIVE [None]
  - FATIGUE [None]
  - DIARRHOEA [None]
  - COLLAGEN DISORDER [None]
  - INSOMNIA [None]
  - VISUAL IMPAIRMENT [None]
  - JOINT SURGERY [None]
  - RHEUMATOID ARTHRITIS [None]
